FAERS Safety Report 23919795 (Version 1)
Quarter: 2024Q2

REPORT INFORMATION
  Report Type: Spontaneous
  Country: US (occurrence: None)
  Receive Date: 20240529
  Receipt Date: 20240529
  Transmission Date: 20240715
  Serious: Yes (Hospitalization)
  Sender: FDA-Public Use
  Company Number: None

PATIENT
  Age: 49 Year
  Sex: Male
  Weight: 103.5 kg

DRUGS (4)
  1. TIANEPTINE [Suspect]
     Active Substance: TIANEPTINE
     Dosage: OTHER QUANTITY : 10 ML;?
     Route: 048
     Dates: start: 20240527, end: 20240527
  2. Lozartin [Concomitant]
  3. Fenophibrate [Concomitant]
  4. TRAZODONE [Concomitant]
     Active Substance: TRAZODONE HYDROCHLORIDE

REACTIONS (5)
  - Illness [None]
  - Seizure [None]
  - Speech disorder [None]
  - Vomiting [None]
  - Product label issue [None]

NARRATIVE: CASE EVENT DATE: 20240527
